FAERS Safety Report 8601040-9 (Version None)
Quarter: 2012Q3

REPORT INFORMATION
  Report Type: 
  Country: None (occurrence: None)
  Receive Date: 20120817
  Receipt Date: 20120810
  Transmission Date: 20120928
  Serious: Yes (Other)
  Sender: FDA-Public Use
  Company Number: NL-UCBSA-063458

PATIENT
  Sex: Male

DRUGS (1)
  1. NEUPRO [Suspect]
     Indication: RESTLESS LEGS SYNDROME
     Route: 062

REACTIONS (4)
  - SYNCOPE [None]
  - VOMITING [None]
  - LISTLESS [None]
  - SEIZURE LIKE PHENOMENA [None]
